FAERS Safety Report 10497818 (Version 2)
Quarter: 2014Q4

REPORT INFORMATION
  Report Type: Report from Study
  Country: US (occurrence: US)
  Receive Date: 20141006
  Receipt Date: 20141006
  Transmission Date: 20150528
  Serious: Yes (Other)
  Sender: FDA-Public Use
  Company Number: US-SA-2014SA001154

PATIENT
  Age: 44 Year
  Sex: Female
  Weight: 157 kg

DRUGS (2)
  1. AUBAGIO [Suspect]
     Active Substance: TERIFLUNOMIDE
     Indication: MULTIPLE SCLEROSIS
     Route: 048
     Dates: start: 20130623
  2. AUBAGIO [Suspect]
     Active Substance: TERIFLUNOMIDE
     Indication: MULTIPLE SCLEROSIS
     Route: 048

REACTIONS (10)
  - Stress [Recovered/Resolved]
  - Paraesthesia [Recovering/Resolving]
  - Diarrhoea [Unknown]
  - Uterine dilation and curettage [Unknown]
  - Hypoaesthesia [Recovering/Resolving]
  - Malaise [Unknown]
  - Alopecia [Recovering/Resolving]
  - Drug dose omission [Unknown]
  - Vulvovaginal mycotic infection [Unknown]
  - Vaginitis bacterial [Unknown]

NARRATIVE: CASE EVENT DATE: 201311
